FAERS Safety Report 8828884 (Version 1)
Quarter: 2012Q4

REPORT INFORMATION
  Report Type: Report from Study
  Country: DE (occurrence: DE)
  Receive Date: 20121008
  Receipt Date: 20121008
  Transmission Date: 20130627
  Serious: Yes (Hospitalization)
  Sender: FDA-Public Use
  Company Number: DE-ROCHE-1137713

PATIENT
  Age: 67 Year
  Sex: Male
  Weight: 83 kg

DRUGS (3)
  1. AVASTIN [Suspect]
     Indication: COLON CANCER
     Dosage: Date of last dose prior to SAE 12/Sep/2012
     Route: 042
     Dates: start: 20120912
  2. CALCIUM FOLINATE [Suspect]
     Indication: COLON CANCER
     Dosage: Date of last dose prior to SAE 12/Sep/2012
     Route: 042
     Dates: start: 20120912
  3. 5-FLUOROURACIL [Suspect]
     Indication: COLON CANCER
     Route: 042

REACTIONS (2)
  - Circulatory collapse [Recovered/Resolved]
  - Diarrhoea [Recovered/Resolved]
